FAERS Safety Report 19742993 (Version 1)
Quarter: 2021Q3

REPORT INFORMATION
  Report Type: Spontaneous
  Country: DE (occurrence: DE)
  Receive Date: 20210825
  Receipt Date: 20210825
  Transmission Date: 20211014
  Serious: Yes (Hospitalization)
  Sender: FDA-Public Use
  Company Number: DE-MYLANLABS-2021M1054662

PATIENT
  Age: 69 Year
  Sex: Male

DRUGS (9)
  1. SPIRONOLACTONE. [Suspect]
     Active Substance: SPIRONOLACTONE
     Indication: PRODUCT USED FOR UNKNOWN INDICATION
     Dosage: 50 MILLIGRAM, BID, 1?1?0?0
  2. CEFUROXIME. [Suspect]
     Active Substance: CEFUROXIME
     Indication: PRODUCT USED FOR UNKNOWN INDICATION
     Dosage: UNK
  3. DILTIAZEM. [Concomitant]
     Active Substance: DILTIAZEM
     Dosage: 90 MILLIGRAM, QD, 1?0?0?0
  4. ATACAND HCT [Concomitant]
     Active Substance: CANDESARTAN CILEXETIL\HYDROCHLOROTHIAZIDE
     Dosage: QD, 32|25 MG, 1?0?0?0
  5. ELIQUIS [Concomitant]
     Active Substance: APIXABAN
     Dosage: 5 MILLIGRAM, BID, 1?0?1?0
  6. SALBUTAMOL [Concomitant]
     Active Substance: ALBUTEROL
     Dosage: DOSIERAEROSOL
     Route: 055
  7. MUCOFALK APPLE [Concomitant]
     Dosage: BID, 1?1?1?0
  8. JODID [Concomitant]
     Active Substance: IODINE
     Dosage: QD, 1?0?0?0
  9. ALLOPURINOL. [Concomitant]
     Active Substance: ALLOPURINOL
     Dosage: 100 MILLIGRAM, PAUSIERT

REACTIONS (2)
  - Ascites [Unknown]
  - Renal failure [Unknown]
